FAERS Safety Report 7306318-7 (Version None)
Quarter: 2011Q1

REPORT INFORMATION
  Report Type: 
  Country: None (occurrence: None)
  Receive Date: 20110222
  Receipt Date: 20110214
  Transmission Date: 20110831
  Serious: Yes (Hospitalization)
  Sender: FDA-Public Use
  Company Number: PHHO2010FR17684

PATIENT
  Sex: Male

DRUGS (1)
  1. IMATINIB [Suspect]
     Indication: CHRONIC MYELOID LEUKAEMIA
     Dosage: 200 MG, BID
     Route: 048
     Dates: start: 20010101

REACTIONS (10)
  - DISTURBANCE IN ATTENTION [None]
  - AGRAPHIA [None]
  - READING DISORDER [None]
  - PYREXIA [None]
  - HEADACHE [None]
  - IMMUNOSUPPRESSION [None]
  - APHASIA [None]
  - MENINGOENCEPHALITIS HERPETIC [None]
  - CONFUSIONAL STATE [None]
  - SPEECH DISORDER [None]
